FAERS Safety Report 15190236 (Version 1)
Quarter: 2018Q3

REPORT INFORMATION
  Report Type: Report from Study
  Country: JP (occurrence: JP)
  Receive Date: 20180724
  Receipt Date: 20180724
  Transmission Date: 20181010
  Serious: Yes (Hospitalization, Other)
  Sender: FDA-Public Use
  Company Number: JP-ACTELION-A-CH2018-175609

PATIENT
  Age: 84 Year
  Sex: Female

DRUGS (13)
  1. LIXIANA [Concomitant]
     Active Substance: EDOXABAN TOSYLATE
  2. OXYGEN. [Concomitant]
     Active Substance: OXYGEN
  3. MICARDIS [Concomitant]
     Active Substance: TELMISARTAN
  4. FEBURIC [Concomitant]
     Active Substance: FEBUXOSTAT
  5. BISOPROLOL FUMARATE. [Concomitant]
     Active Substance: BISOPROLOL FUMARATE
  6. AZOSEMIDE [Concomitant]
     Active Substance: AZOSEMIDE
  7. ROZEREM [Concomitant]
     Active Substance: RAMELTEON
  8. BERASUS [Concomitant]
     Active Substance: BERAPROST SODIUM
  9. ADCIRCA [Concomitant]
     Active Substance: TADALAFIL
  10. OPSUMIT [Suspect]
     Active Substance: MACITENTAN
     Indication: PULMONARY ARTERIAL HYPERTENSION
     Dosage: 10 MG, QD
     Route: 048
     Dates: start: 20161214
  11. THYRADIN [Concomitant]
     Active Substance: LEVOTHYROXINE
  12. BROTIZOLAM [Concomitant]
     Active Substance: BROTIZOLAM
  13. CLOTIAPINE [Concomitant]
     Active Substance: CLOTHIAPINE

REACTIONS (6)
  - Transfusion [Unknown]
  - Platelet count decreased [Not Recovered/Not Resolved]
  - Blood pressure decreased [Not Recovered/Not Resolved]
  - Hepatic function abnormal [Not Recovered/Not Resolved]
  - Gamma-glutamyltransferase increased [Not Recovered/Not Resolved]
  - Anaemia [Not Recovered/Not Resolved]

NARRATIVE: CASE EVENT DATE: 20161216
